FAERS Safety Report 23217019 (Version 1)
Quarter: 2023Q4

REPORT INFORMATION
  Report Type: Report from Study
  Country: US (occurrence: None)
  Receive Date: 20231122
  Receipt Date: 20231122
  Transmission Date: 20240109
  Serious: Yes (Other)
  Sender: FDA-Public Use
  Company Number: 2023A260159

PATIENT
  Sex: Female
  Weight: 66.2 kg

DRUGS (11)
  1. CALQUENCE [Suspect]
     Active Substance: ACALABRUTINIB
     Indication: B-cell small lymphocytic lymphoma
     Route: 048
     Dates: start: 20230418
  2. BENADRYL [Concomitant]
     Active Substance: DIPHENHYDRAMINE HYDROCHLORIDE
  3. BUPROPION [Concomitant]
     Active Substance: BUPROPION
  4. FLUOXETINE [Concomitant]
     Active Substance: FLUOXETINE HYDROCHLORIDE
  5. IMODIUM AD [Concomitant]
     Active Substance: LOPERAMIDE HYDROCHLORIDE
  6. VITAMINS [Concomitant]
     Active Substance: VITAMINS
  7. PIOGLITAZONE [Concomitant]
     Active Substance: PIOGLITAZONE
  8. TELMISARTAN [Concomitant]
     Active Substance: TELMISARTAN
  9. TOUJEO [Concomitant]
     Active Substance: INSULIN GLARGINE
  10. VITAMIN B [Concomitant]
     Active Substance: VITAMIN B
  11. XANAX [Concomitant]
     Active Substance: ALPRAZOLAM

REACTIONS (2)
  - Blood glucose decreased [Recovering/Resolving]
  - Muscle tightness [Not Recovered/Not Resolved]
